FAERS Safety Report 4482000-9 (Version None)
Quarter: 2004Q4

REPORT INFORMATION
  Report Type: 
  Country: None (occurrence: None)
  Receive Date: 20041020
  Receipt Date: 20041006
  Transmission Date: 20050328
  Serious: Yes (Hospitalization, Other)
  Sender: FDA-Public Use
  Company Number: FR_040904851

PATIENT
  Age: 71 Year
  Sex: Male

DRUGS (2)
  1. CELANCE (PERGOLIDE MESYLATE) [Suspect]
     Indication: PARKINSON'S DISEASE
     Dosage: 6 MG DAY
     Dates: start: 20000101
  2. SINEMET [Concomitant]

REACTIONS (8)
  - ABDOMINAL PAIN UPPER [None]
  - AORTIC VALVE DISEASE [None]
  - CORONARY ARTERY DISEASE [None]
  - CORONARY ARTERY OCCLUSION [None]
  - MITRAL VALVE DISEASE [None]
  - MYOCARDIAL INFARCTION [None]
  - NAUSEA [None]
  - SYNCOPE VASOVAGAL [None]
